FAERS Safety Report 21128683 (Version 3)
Quarter: 2023Q4

REPORT INFORMATION
  Report Type: Other
  Country: US (occurrence: None)
  Receive Date: 20220725
  Receipt Date: 20231020
  Transmission Date: 20240110
  Serious: Yes (Hospitalization, Other)
  Sender: FDA-Public Use
  Company Number: US-ROCHE-3140894

PATIENT
  Age: 63 Year
  Sex: Male
  Weight: 113.5 kg

DRUGS (6)
  1. OCREVUS [Suspect]
     Active Substance: OCRELIZUMAB
     Indication: Relapsing-remitting multiple sclerosis
     Dosage: 600 MG EVERY 6 MONTHS 1ST 2 DOSES
     Route: 042
     Dates: start: 20220216
  2. OCREVUS [Suspect]
     Active Substance: OCRELIZUMAB
     Route: 042
     Dates: start: 2021
  3. OCREVUS [Suspect]
     Active Substance: OCRELIZUMAB
     Dosage: STANDARD DOSE FULL INFUSION?DATE OF TREATMENT: 16/FEB/2022, 01/MAR/2022, 19/SEP/2022, 20/MAR/2023, 2
     Route: 042
     Dates: start: 2022
  4. KLONOPIN [Suspect]
     Active Substance: CLONAZEPAM
     Indication: Sleep disorder
     Route: 048
     Dates: start: 2022
  5. KLONOPIN [Suspect]
     Active Substance: CLONAZEPAM
     Dosage: TAKES DURING THE DAY
     Route: 048
     Dates: start: 2022
  6. KLONOPIN [Suspect]
     Active Substance: CLONAZEPAM
     Route: 048
     Dates: end: 2022

REACTIONS (17)
  - Upper respiratory tract infection [Recovered/Resolved]
  - COVID-19 [Recovered/Resolved]
  - Head injury [Recovered/Resolved]
  - Cellulitis [Recovered/Resolved]
  - Nephrolithiasis [Recovered/Resolved]
  - Thrombosis [Recovered/Resolved]
  - Off label use [Unknown]
  - Headache [Recovering/Resolving]
  - Fatigue [Not Recovered/Not Resolved]
  - Gait disturbance [Not Recovered/Not Resolved]
  - Arthralgia [Not Recovered/Not Resolved]
  - Balance disorder [Not Recovered/Not Resolved]
  - Fall [Unknown]
  - Nephropathy [Unknown]
  - Gout [Unknown]
  - Spinal cord compression [Not Recovered/Not Resolved]
  - Paraesthesia [Not Recovered/Not Resolved]

NARRATIVE: CASE EVENT DATE: 20210101
